FAERS Safety Report 6279691-9 (Version None)
Quarter: 2009Q3

REPORT INFORMATION
  Report Type: 
  Country: None (occurrence: None)
  Receive Date: 20090723
  Receipt Date: 20090716
  Transmission Date: 20100115
  Serious: Yes (Hospitalization)
  Sender: FDA-Public Use
  Company Number: AT-MERCK-0907AUT00006

PATIENT
  Age: 15 Year
  Sex: Male

DRUGS (4)
  1. SINGULAIR [Suspect]
     Indication: ASTHMA
     Route: 048
     Dates: end: 20090101
  2. SINGULAIR [Suspect]
     Indication: ASTHMA EXERCISE INDUCED
     Route: 048
     Dates: end: 20090101
  3. DESLORATADINE [Concomitant]
     Indication: ASTHMA
     Route: 065
     Dates: end: 20090101
  4. BUDESONIDE AND FORMOTEROL FUMARATE [Concomitant]
     Indication: ASTHMA
     Route: 065
     Dates: end: 20090101

REACTIONS (3)
  - CONCUSSION [None]
  - ELECTROENCEPHALOGRAM ABNORMAL [None]
  - ROAD TRAFFIC ACCIDENT [None]
